FAERS Safety Report 16922033 (Version 1)
Quarter: 2019Q4

REPORT INFORMATION
  Report Type: Spontaneous
  Country: FR (occurrence: FR)
  Receive Date: 20191015
  Receipt Date: 20191015
  Transmission Date: 20200122
  Serious: Yes (Other)
  Sender: FDA-Public Use
  Company Number: FR-CELLTRION INC.-2018FR021795

PATIENT

DRUGS (1)
  1. RITUXIMAB (UNKNOWN) [Suspect]
     Active Substance: RITUXIMAB
     Indication: HYPERTRIGLYCERIDAEMIA
     Dosage: 375 MG/M2, QW (3 WEEKS)
     Route: 041

REACTIONS (7)
  - Vomiting [Unknown]
  - Suspected transmission of an infectious agent via product [Unknown]
  - Device related infection [Unknown]
  - Product use in unapproved indication [Unknown]
  - Off label use [Unknown]
  - Therapeutic response unexpected [Unknown]
  - Nausea [Unknown]
